FAERS Safety Report 9387018 (Version 1)
Quarter: 2013Q3

REPORT INFORMATION
  Report Type: Spontaneous
  Country: GB (occurrence: None)
  Receive Date: 20130702
  Receipt Date: 20130702
  Transmission Date: 20140515
  Serious: Yes (Life-Threatening, Hospitalization)
  Sender: FDA-Public Use
  Company Number: AUR-APL-2013-05386

PATIENT
  Age: 51 Year
  Sex: Female

DRUGS (5)
  1. QUETIAPINE (QUETIAPINE) [Suspect]
     Indication: PRODUCT USED FOR UNKNOWN INDICATION
     Dosage: (24 DOSAGE FORMS)
     Dates: start: 20130328, end: 20130328
  2. PARACETAMOL (PARACETAMOL) [Concomitant]
     Indication: PRODUCT USED FOR UNKNOWN INDICATION
     Dosage: (16 DOSAGE FORMS)
     Dates: start: 20130328, end: 20130328
  3. DOXYCYCLINE (DOXYCYCLINE) [Suspect]
     Indication: PRODUCT USED FOR UNKNOWN INDICATION
     Dosage: (6 DOSAGE FORMS)
     Dates: start: 20130328, end: 20130328
  4. PROPANOL [Suspect]
     Indication: PRODUCT USED FOR UNKNOWN INDICATION
     Dosage: (22 DOSAGE FORMS)
     Dates: start: 20130328, end: 20130328
  5. ZAPONEX [Suspect]
     Indication: PRODUCT USED FOR UNKNOWN INDICATION
     Route: 048
     Dates: start: 02090803, end: 200908

REACTIONS (7)
  - Overdose [None]
  - Liver function test abnormal [None]
  - Hypotension [None]
  - Gamma-glutamyltransferase increased [None]
  - Blood alkaline phosphatase increased [None]
  - Protein total decreased [None]
  - Alanine aminotransferase increased [None]
